FAERS Safety Report 5491470-9 (Version None)
Quarter: 2007Q4

REPORT INFORMATION
  Report Type: 
  Country: None (occurrence: None)
  Receive Date: 20071018
  Receipt Date: 20071011
  Transmission Date: 20080405
  Serious: Yes (Hospitalization)
  Sender: FDA-Public Use
  Company Number: 163-20785-07100624

PATIENT
  Age: 81 Year
  Sex: Male
  Weight: 67.586 kg

DRUGS (2)
  1. THALOMID [Suspect]
     Indication: PROSTATE CANCER
     Dosage: 100 MG, QD, ORAL
     Route: 048
     Dates: start: 20070910
  2. DOXIL [Suspect]
     Indication: PROSTATE CANCER
     Dosage: 40MG/M2, Q 28 DAYS, INTRAVENOUS
     Route: 042
     Dates: start: 20070930

REACTIONS (5)
  - ASTHENIA [None]
  - DIZZINESS [None]
  - HAEMOGLOBIN DECREASED [None]
  - INTERNATIONAL NORMALISED RATIO INCREASED [None]
  - JAUNDICE [None]
